FAERS Safety Report 5701570-3 (Version None)
Quarter: 2008Q2

REPORT INFORMATION
  Report Type: 
  Country: None (occurrence: None)
  Receive Date: 20080408
  Receipt Date: 20080402
  Transmission Date: 20081010
  Serious: Yes (Life-Threatening, Hospitalization, Other)
  Sender: FDA-Public Use
  Company Number: CLOF-10811

PATIENT
  Age: 67 Year
  Sex: Male

DRUGS (38)
  1. CLOFARABINE (CLOFARABINE) SOLUTION FOR INFUSION [Suspect]
     Indication: ACUTE MYELOID LEUKAEMIA
     Dosage: 39 MG, QDX5, INTRAVENOUS
     Route: 042
     Dates: start: 20071122, end: 20071126
  2. IDARUBICIN HCL [Suspect]
     Indication: ACUTE MYELOID LEUKAEMIA
     Dosage: 10.5 MG, QDX3, INTRAVENOUS
     Route: 042
     Dates: start: 20071121, end: 20071123
  3. PANTOPRAZOLE SODIUM [Concomitant]
  4. AZTREONAM (AZTREONAM) [Concomitant]
  5. CLINDAMYCIN HCL [Concomitant]
  6. ZYVOX [Concomitant]
  7. DILAUDID [Concomitant]
  8. SENOKOT (SENNA ALEXANDRINA) [Concomitant]
  9. CASPOFUNGIN (CASPOFUNGIN) [Concomitant]
  10. CIPRO [Concomitant]
  11. DETROL [Concomitant]
  12. MAGNESIUM OXIDE (MAGNESIUM OXIDE) [Concomitant]
  13. METHADONE HCL [Concomitant]
  14. REGLAN [Concomitant]
  15. MINOCYCLINE HCL [Concomitant]
  16. VALTREX [Concomitant]
  17. COMPAZINE (PROCHLORPERAZINE MALEATE) [Concomitant]
  18. DARVON (DEXTROPROPDXYPHENE NAPSILATE) [Concomitant]
  19. DILTIAZEM (DILTIAZEM HYDROCHLORIDE) [Concomitant]
  20. MEGACE [Concomitant]
  21. POTASSIUM CHLORIDE [Concomitant]
  22. PROTONIX [Concomitant]
  23. PREDNISOLONE ACETATE [Concomitant]
  24. CLONIDINE [Concomitant]
  25. DAPTOMYCIN (DAPTOMYCIN) [Concomitant]
  26. QUETIAPINE FUMARATE [Concomitant]
  27. VFEND [Concomitant]
  28. ACYCLOVIR [Concomitant]
  29. AMPHOTERICIN B [Concomitant]
  30. VORICONAZOLE (VORICONAZOLE) [Concomitant]
  31. CIPRO [Concomitant]
  32. LEVALBUTEROL HYDROCHLORIDE (LEVOSALBUTAMOL HYDROCHLORIDE) [Concomitant]
  33. LASIX [Concomitant]
  34. DIPHENHYDRAMINE (DIPHENHYDRAMINE, SODIUM CITRATE) [Concomitant]
  35. ANTIHEMOPHILIC FACTOR (FACTOR VIII (ANTIHAEMOPHILIC FACTOR)) [Concomitant]
  36. MEROPENEM (MEROPENEM) [Concomitant]
  37. AMIKACIN SULFATE [Concomitant]
  38. METHYLPREDNISOLONE [Concomitant]

REACTIONS (12)
  - ACTIVATED PARTIAL THROMBOPLASTIN TIME PROLONGED [None]
  - ACUTE RESPIRATORY FAILURE [None]
  - ASTHENIA [None]
  - BONE MARROW FAILURE [None]
  - CONFUSIONAL STATE [None]
  - HAEMOGLOBIN DECREASED [None]
  - HYPOTENSION [None]
  - HYPOXIA [None]
  - LABORATORY TEST ABNORMAL [None]
  - LUNG INFECTION [None]
  - PLATELET COUNT DECREASED [None]
  - PNEUMONIA [None]
